FAERS Safety Report 9720064 (Version 4)
Quarter: 2015Q4

REPORT INFORMATION
  Report Type: Report from Study
  Country: US (occurrence: US)
  Receive Date: 20131128
  Receipt Date: 20151014
  Transmission Date: 20160305
  Serious: Yes (Other)
  Sender: FDA-Public Use
  Company Number: US-ROCHE-1307429

PATIENT
  Age: 56 Year
  Sex: Male
  Weight: 104.42 kg

DRUGS (23)
  1. ACTEMRA [Suspect]
     Active Substance: TOCILIZUMAB
     Route: 042
     Dates: start: 201305
  2. ACTEMRA [Suspect]
     Active Substance: TOCILIZUMAB
     Dosage: MOST RECENT DOSE PRIOR TO ADVERSE EVENT WAS AT 05/JUN/2013.
     Route: 042
     Dates: start: 201306
  3. PREDNISONE. [Concomitant]
     Active Substance: PREDNISONE
     Route: 048
  4. ACETAMINOPHEN. [Concomitant]
     Active Substance: ACETAMINOPHEN
     Dosage: 10/325MG AS NEEDED DAILY AS NEEED
     Route: 065
  5. PREDNISONE. [Concomitant]
     Active Substance: PREDNISONE
     Route: 048
  6. SAW PALMETTO [Concomitant]
     Active Substance: SAW PALMETTO
     Route: 065
  7. ACTEMRA [Suspect]
     Active Substance: TOCILIZUMAB
     Route: 042
     Dates: start: 20130904
  8. ACTEMRA [Suspect]
     Active Substance: TOCILIZUMAB
     Indication: RHEUMATOID ARTHRITIS
     Route: 042
     Dates: start: 20131106
  9. ACTEMRA [Suspect]
     Active Substance: TOCILIZUMAB
     Dosage: 5TH INFUSION
     Route: 042
     Dates: start: 20130702
  10. PRILOSEC [Concomitant]
     Active Substance: OMEPRAZOLE MAGNESIUM
     Route: 065
  11. ACTEMRA [Suspect]
     Active Substance: TOCILIZUMAB
     Route: 042
     Dates: start: 201303
  12. ACTEMRA [Suspect]
     Active Substance: TOCILIZUMAB
     Route: 042
     Dates: start: 201304
  13. ACTEMRA [Suspect]
     Active Substance: TOCILIZUMAB
     Route: 042
  14. TYLENOL [Concomitant]
     Active Substance: ACETAMINOPHEN
     Indication: ARTHRITIS
     Dosage: AS REQUIRED
     Route: 048
  15. ACTEMRA [Suspect]
     Active Substance: TOCILIZUMAB
     Route: 042
     Dates: start: 20131204
  16. TYLENOL [Concomitant]
     Active Substance: ACETAMINOPHEN
     Indication: PREMEDICATION
  17. METHOTREXATE [Concomitant]
     Active Substance: METHOTREXATE
     Dosage: 8 TABLETS WEEKLY
     Route: 048
  18. PREDNISONE. [Concomitant]
     Active Substance: PREDNISONE
     Route: 048
  19. ASPIRIN. [Concomitant]
     Active Substance: ASPIRIN
     Route: 048
  20. FOLIC ACID. [Concomitant]
     Active Substance: FOLIC ACID
     Route: 065
  21. METHOTREXATE [Concomitant]
     Active Substance: METHOTREXATE
     Dosage: 8 TABLETS WEEKLY
     Route: 048
  22. PREDNISONE. [Concomitant]
     Active Substance: PREDNISONE
     Route: 048
  23. BENADRYL [Concomitant]
     Active Substance: DIPHENHYDRAMINE HYDROCHLORIDE
     Route: 048

REACTIONS (26)
  - Very low density lipoprotein increased [Unknown]
  - Tenderness [Unknown]
  - Myalgia [Unknown]
  - Flatulence [Unknown]
  - Blood triglycerides increased [Unknown]
  - Swelling [Unknown]
  - Muscular weakness [Unknown]
  - Insomnia [Unknown]
  - Contusion [Unknown]
  - Decreased appetite [Unknown]
  - Peripheral swelling [Unknown]
  - Joint swelling [Unknown]
  - Back pain [Unknown]
  - Neck pain [Unknown]
  - Pain [Unknown]
  - Paraesthesia [Unknown]
  - Drug ineffective [Unknown]
  - Cough [Unknown]
  - Musculoskeletal pain [Unknown]
  - Hypoaesthesia [Unknown]
  - Pain in extremity [Unknown]
  - Muscle spasms [Unknown]
  - Arthralgia [Unknown]
  - Fatigue [Unknown]
  - Dyspepsia [Unknown]
  - Musculoskeletal stiffness [Unknown]

NARRATIVE: CASE EVENT DATE: 20130605
